FAERS Safety Report 15877102 (Version 1)
Quarter: 2019Q1

REPORT INFORMATION
  Report Type: Report from Study
  Country: US (occurrence: US)
  Receive Date: 20190128
  Receipt Date: 20190128
  Transmission Date: 20190417
  Serious: Yes (Hospitalization)
  Sender: FDA-Public Use
  Company Number: US-SAKK-2019SA013707AA

PATIENT
  Age: 83 Year
  Sex: Female

DRUGS (1)
  1. INSULIN GLARGINE [Suspect]
     Active Substance: INSULIN GLARGINE
     Indication: DIABETES MELLITUS
     Dosage: 30 U, QD
     Route: 058

REACTIONS (6)
  - Fall [Unknown]
  - Pelvic fracture [Recovered/Resolved]
  - Haematoma [Recovered/Resolved]
  - Knee operation [Recovered/Resolved]
  - Unevaluable event [Not Recovered/Not Resolved]
  - Cerebral haemorrhage [Recovered/Resolved]

NARRATIVE: CASE EVENT DATE: 201804
